FAERS Safety Report 11934462 (Version 2)
Quarter: 2016Q1

REPORT INFORMATION
  Report Type: Spontaneous
  Country: ES (occurrence: ES)
  Receive Date: 20160121
  Receipt Date: 20160201
  Transmission Date: 20160526
  Serious: Yes (Death, Other)
  Sender: FDA-Public Use
  Company Number: ES-ASTRAZENECA-2016SE00919

PATIENT
  Age: 17215 Day
  Sex: Female
  Weight: 62 kg

DRUGS (3)
  1. IBRANCE [Suspect]
     Active Substance: PALBOCICLIB
     Indication: BREAST CANCER
     Route: 048
     Dates: start: 20150717, end: 20151030
  2. FASLODEX [Suspect]
     Active Substance: FULVESTRANT
     Indication: BREAST CANCER
     Dosage: 500 MG EVERY 15 DAYS
     Route: 030
     Dates: start: 20110614
  3. PREDNISONE. [Concomitant]
     Active Substance: PREDNISONE
     Indication: BREAST CANCER
     Route: 048
     Dates: start: 20140830

REACTIONS (5)
  - Bone marrow toxicity [Unknown]
  - Malignant neoplasm progression [Fatal]
  - Spinal fracture [Recovering/Resolving]
  - Spinal cord compression [Unknown]
  - Bone disorder [Unknown]

NARRATIVE: CASE EVENT DATE: 20151113
